FAERS Safety Report 10891688 (Version 1)
Quarter: 2015Q1

REPORT INFORMATION
  Report Type: Spontaneous
  Country: US (occurrence: US)
  Receive Date: 20150306
  Receipt Date: 20150306
  Transmission Date: 20150721
  Serious: Yes (Other)
  Sender: FDA-Public Use
  Company Number: US-SA-2015SA026163

PATIENT
  Age: 68 Year
  Sex: Female

DRUGS (1)
  1. LANTUS [Suspect]
     Active Substance: INSULIN GLARGINE
     Dosage: START DATE: 2005 APPROXIMATELY
     Route: 065
     Dates: start: 2005

REACTIONS (3)
  - Uterine cancer [Unknown]
  - Alopecia [Recovering/Resolving]
  - Basal cell carcinoma [Unknown]

NARRATIVE: CASE EVENT DATE: 2012
